FAERS Safety Report 19583530 (Version 2)
Quarter: 2021Q3

REPORT INFORMATION
  Report Type: Spontaneous
  Country: US (occurrence: US)
  Receive Date: 20210720
  Receipt Date: 20210725
  Transmission Date: 20211014
  Serious: No
  Sender: FDA-Public Use
  Company Number: US-AMGEN-USASP2021108780

PATIENT
  Age: 63 Year
  Sex: Female
  Weight: 97.96 kg

DRUGS (2)
  1. REPATHA [Suspect]
     Active Substance: EVOLOCUMAB
     Indication: HYPERCHOLESTEROLAEMIA
     Dosage: 140 MILLIGRAM
     Route: 065
     Dates: start: 20180731
  2. LIPITOR [Concomitant]
     Active Substance: ATORVASTATIN CALCIUM
     Indication: HYPERCHOLESTEROLAEMIA
     Dosage: 20 MILLIGRAM, QD

REACTIONS (5)
  - Accidental exposure to product [Unknown]
  - Product storage error [Unknown]
  - Rash papular [Recovering/Resolving]
  - Wrong technique in product usage process [Unknown]
  - Dysphonia [Unknown]

NARRATIVE: CASE EVENT DATE: 20210706
